FAERS Safety Report 9171009 (Version 1)
Quarter: 2013Q1

REPORT INFORMATION
  Report Type: Spontaneous
  Country: DE (occurrence: DE)
  Receive Date: 20130319
  Receipt Date: 20130319
  Transmission Date: 20140127
  Serious: Yes (Hospitalization)
  Sender: FDA-Public Use
  Company Number: DE-GALDERMA-DE13000840

PATIENT
  Age: 13 Year
  Sex: Female
  Weight: 111 kg

DRUGS (1)
  1. EPIDUO [Suspect]
     Indication: ACNE
     Dosage: 0.1%-2.5%
     Route: 061
     Dates: start: 20121119, end: 20121121

REACTIONS (3)
  - Dermatitis allergic [Recovered/Resolved]
  - Erythema [Recovered/Resolved]
  - Swelling face [Recovered/Resolved]
